FAERS Safety Report 18379129 (Version 1)
Quarter: 2020Q4

REPORT INFORMATION
  Report Type: Spontaneous
  Country: US (occurrence: US)
  Receive Date: 20201013
  Receipt Date: 20201013
  Transmission Date: 20210114
  Serious: Yes (Life-Threatening, Hospitalization, Other)
  Sender: FDA-Public Use
  Company Number: US-PURDUE-USA-2020-0170198

PATIENT
  Sex: Male

DRUGS (4)
  1. OXYCONTIN [Suspect]
     Active Substance: OXYCODONE HYDROCHLORIDE
     Indication: ARTHRITIS
     Dosage: UNK
     Route: 048
  2. PERCOCET                           /00446701/ [Suspect]
     Active Substance: ACETAMINOPHEN\OXYCODONE HYDROCHLORIDE\OXYCODONE TEREPHTHALATE
     Indication: BONE LOSS
  3. OXYCONTIN [Suspect]
     Active Substance: OXYCODONE HYDROCHLORIDE
     Indication: BONE LOSS
  4. PERCOCET                           /00446701/ [Suspect]
     Active Substance: ACETAMINOPHEN\OXYCODONE HYDROCHLORIDE\OXYCODONE TEREPHTHALATE
     Indication: ARTHRITIS
     Dosage: UNK
     Route: 065

REACTIONS (12)
  - General physical health deterioration [Unknown]
  - Aspiration pleural cavity [Unknown]
  - Drug dependence [Unknown]
  - Cardiac pacemaker insertion [Unknown]
  - Localised infection [Unknown]
  - Quality of life decreased [Unknown]
  - Duodenal ulcer repair [Unknown]
  - Stress [Unknown]
  - Product prescribing issue [Unknown]
  - Leg amputation [Unknown]
  - Hip surgery [Unknown]
  - Pain [Unknown]

NARRATIVE: CASE EVENT DATE: 20130829
